FAERS Safety Report 19617844 (Version 1)
Quarter: 2021Q3

REPORT INFORMATION
  Report Type: Spontaneous
  Country: US (occurrence: US)
  Receive Date: 20210727
  Receipt Date: 20210727
  Transmission Date: 20211014
  Serious: No
  Sender: FDA-Public Use
  Company Number: US-PFIZER INC-2021393059

PATIENT
  Age: 74 Year
  Sex: Male
  Weight: 106.59 kg

DRUGS (2)
  1. AMBIEN CR [Suspect]
     Active Substance: ZOLPIDEM TARTRATE
     Indication: INSOMNIA
     Dosage: 12.5 MG, DAILY (EVERY NIGHT)
  2. HALCION [Suspect]
     Active Substance: TRIAZOLAM
     Indication: SLEEP DISORDER
     Dosage: 0.25 MG, DAILY (EVERY NIGHT )

REACTIONS (3)
  - Feeling abnormal [Unknown]
  - Labelled drug-food interaction medication error [Unknown]
  - Drug ineffective [Unknown]
